FAERS Safety Report 20150366 (Version 2)
Quarter: 2022Q2

REPORT INFORMATION
  Report Type: Report from Study
  Country: US (occurrence: US)
  Receive Date: 20211206
  Receipt Date: 20220413
  Transmission Date: 20220721
  Serious: Yes (Other)
  Sender: FDA-Public Use
  Company Number: US-ABBVIE-21K-163-3926039-00

PATIENT
  Age: 61 Year
  Sex: Female

DRUGS (3)
  1. HUMIRA [Suspect]
     Active Substance: ADALIMUMAB
     Indication: Psoriasis
     Dosage: CITRATE FREE
     Route: 058
  2. HUMIRA [Suspect]
     Active Substance: ADALIMUMAB
     Route: 058
     Dates: start: 202110
  3. JANSSEN COVID-19 VACCINE [Concomitant]
     Active Substance: AD26.COV2.S
     Indication: COVID-19 immunisation
     Dosage: 1ST DOSE?JOHNSON + JOHNSON
     Route: 030
     Dates: start: 20210201, end: 20210201

REACTIONS (4)
  - Breast cancer female [Not Recovered/Not Resolved]
  - Lip neoplasm malignant stage unspecified [Recovering/Resolving]
  - Fall [Unknown]
  - Psoriasis [Unknown]

NARRATIVE: CASE EVENT DATE: 20210401
